FAERS Safety Report 17468235 (Version 1)
Quarter: 2020Q1

REPORT INFORMATION
  Report Type: Spontaneous
  Country: DE (occurrence: DE)
  Receive Date: 20200227
  Receipt Date: 20200227
  Transmission Date: 20200409
  Serious: Yes (Hospitalization)
  Sender: FDA-Public Use
  Company Number: DE-JNJFOC-20200228810

PATIENT
  Sex: Female

DRUGS (2)
  1. TREVICTA [Suspect]
     Active Substance: PALIPERIDONE PALMITATE
     Indication: PRODUCT USED FOR UNKNOWN INDICATION
     Route: 030
     Dates: start: 201810
  2. L-THYROXIN [Suspect]
     Active Substance: LEVOTHYROXINE SODIUM
     Indication: PRODUCT USED FOR UNKNOWN INDICATION
     Route: 065

REACTIONS (5)
  - Thyroid hormones increased [Unknown]
  - Psychotic symptom [Unknown]
  - Toxicity to various agents [Unknown]
  - Aggression [Unknown]
  - Mood altered [Unknown]

NARRATIVE: CASE EVENT DATE: 202001
